FAERS Safety Report 5154500-X (Version None)
Quarter: 2006Q4

REPORT INFORMATION
  Report Type: 
  Country: None (occurrence: None)
  Receive Date: 20061114
  Receipt Date: 20061030
  Transmission Date: 20070319
  Serious: Yes (Other)
  Sender: FDA-Public Use
  Company Number: 2006132140

PATIENT
  Age: 19 Year
  Sex: Male

DRUGS (1)
  1. NEURONTIN [Suspect]
     Indication: MUSCLE SPASMS
     Dosage: 400 MG (400 MG, 1 IN 1 D)
     Dates: start: 20061023, end: 20061001

REACTIONS (2)
  - EOSINOPHILIA [None]
  - PYREXIA [None]
